FAERS Safety Report 6512339-4 (Version None)
Quarter: 2009Q4

REPORT INFORMATION
  Report Type: 
  Country: None (occurrence: None)
  Receive Date: 20091222
  Receipt Date: 20090701
  Transmission Date: 20100525
  Serious: No
  Sender: FDA-Public Use
  Company Number: US-ASTRAZENECA-2009UW18553

PATIENT
  Age: 61 Year
  Sex: Female

DRUGS (6)
  1. CRESTOR [Suspect]
     Route: 048
     Dates: start: 20080101
  2. SYNTHROID [Concomitant]
     Indication: THYROID DISORDER
  3. DAYPRO [Concomitant]
     Indication: ARTHRITIS
  4. PREMPRO [Concomitant]
     Indication: HORMONE REPLACEMENT THERAPY
  5. FIORINAL [Concomitant]
     Indication: MIGRAINE
  6. SERZONE [Concomitant]
     Indication: ANXIETY

REACTIONS (1)
  - ALOPECIA [None]
